FAERS Safety Report 23996007 (Version 1)
Quarter: 2024Q2

REPORT INFORMATION
  Report Type: Spontaneous
  Country: ES (occurrence: ES)
  Receive Date: 20240620
  Receipt Date: 20240620
  Transmission Date: 20240716
  Serious: Yes (Hospitalization)
  Sender: FDA-Public Use
  Company Number: None

PATIENT
  Age: 89 Year
  Sex: Female

DRUGS (1)
  1. METFORMIN [Suspect]
     Active Substance: METFORMIN HYDROCHLORIDE
     Indication: Product used for unknown indication
     Dosage: METFORMIN (1359A) 1 TABLET EVERY 12 HOURS CHRONIC
     Route: 048
     Dates: start: 20211021, end: 20240510

REACTIONS (3)
  - Anaemia vitamin B12 deficiency [Recovering/Resolving]
  - Vitamin B12 deficiency [Recovering/Resolving]
  - Polyneuropathy [Recovering/Resolving]

NARRATIVE: CASE EVENT DATE: 20240510
